FAERS Safety Report 7622091-7 (Version None)
Quarter: 2011Q3

REPORT INFORMATION
  Report Type: 
  Country: None (occurrence: None)
  Receive Date: 20110720
  Receipt Date: 20110120
  Transmission Date: 20111222
  Serious: Yes (Hospitalization, Other)
  Sender: FDA-Public Use
  Company Number: US-BAYER-201038026NA

PATIENT
  Age: 19 Year
  Sex: Female
  Weight: 58.957 kg

DRUGS (10)
  1. ALBUTEROL SULATE [Concomitant]
  2. ZANTAC [Concomitant]
  3. YASMIN [Suspect]
     Indication: ACNE
  4. XOPENEX [Concomitant]
  5. ALEVE [NAPROXEN SODIUM] [Concomitant]
  6. DROSPIRENONE AND ETHINYL ESTRADIOL [Suspect]
     Indication: ACNE
  7. ALBUTEROL INHALER [Concomitant]
  8. YAZ [Suspect]
     Indication: ACNE
     Dosage: UNK
     Route: 048
     Dates: start: 20070101, end: 20100101
  9. RANITIDINE [Concomitant]
  10. ULTRAM [Concomitant]

REACTIONS (5)
  - CHOLECYSTITIS CHRONIC [None]
  - CHOLELITHIASIS [None]
  - CHOLECYSTITIS ACUTE [None]
  - PAIN [None]
  - CHOLECYSTECTOMY [None]
